FAERS Safety Report 8312326-X (Version None)
Quarter: 2012Q2

REPORT INFORMATION
  Report Type: 
  Country: None (occurrence: None)
  Receive Date: 20120425
  Receipt Date: 20120417
  Transmission Date: 20120825
  Serious: Yes (Other)
  Sender: FDA-Public Use
  Company Number: JP-ABBOTT-12P-087-0922505-00

PATIENT
  Sex: Male

DRUGS (10)
  1. LANDEL [Concomitant]
     Indication: PRODUCT USED FOR UNKNOWN INDICATION
     Dates: start: 20091201
  2. URINORM [Concomitant]
     Indication: PRODUCT USED FOR UNKNOWN INDICATION
     Dates: start: 20091201
  3. OPALMON [Concomitant]
     Indication: PRODUCT USED FOR UNKNOWN INDICATION
     Dates: start: 20110621
  4. PURSENNID [Concomitant]
     Indication: PRODUCT USED FOR UNKNOWN INDICATION
  5. ARICEPT [Suspect]
     Dosage: UID/QD, ORODISPERSIBLE CR TABLET
     Route: 048
     Dates: start: 20120225, end: 20120305
  6. ARICEPT [Suspect]
     Dosage: UID/QD, ORODISPERSIBLE CR TABLET
     Route: 048
     Dates: start: 20120314, end: 20120320
  7. ARICEPT [Suspect]
     Indication: MEMORY IMPAIRMENT
     Dosage: UID/QD
     Route: 048
     Dates: start: 20120211, end: 20120224
  8. VITAMIN B12 [Concomitant]
     Indication: PRODUCT USED FOR UNKNOWN INDICATION
     Dates: start: 20110621
  9. CEFDINIR [Suspect]
     Indication: INFECTION PROPHYLAXIS
     Route: 048
     Dates: start: 20120211, end: 20120224
  10. DIOVAN [Concomitant]
     Indication: PRODUCT USED FOR UNKNOWN INDICATION
     Dates: start: 20091201

REACTIONS (1)
  - DRUG ERUPTION [None]
